FAERS Safety Report 14137258 (Version 1)
Quarter: 2017Q4

REPORT INFORMATION
  Report Type: Spontaneous
  Country: FR (occurrence: FR)
  Receive Date: 20171027
  Receipt Date: 20171027
  Transmission Date: 20180321
  Serious: Yes (Other)
  Sender: FDA-Public Use
  Company Number: FR-MERCK KGAA-2031715

PATIENT
  Age: 49 Year
  Sex: Female

DRUGS (1)
  1. NOVOTHYROX [Suspect]
     Active Substance: LEVOTHYROXINE SODIUM
     Indication: THYROIDECTOMY
     Route: 048
     Dates: start: 20170601

REACTIONS (6)
  - Hot flush [Not Recovered/Not Resolved]
  - Balance disorder [Not Recovered/Not Resolved]
  - Fatigue [Not Recovered/Not Resolved]
  - Myalgia [Not Recovered/Not Resolved]
  - Headache [Not Recovered/Not Resolved]
  - Palpitations [Not Recovered/Not Resolved]

NARRATIVE: CASE EVENT DATE: 201707
